FAERS Safety Report 10159325 (Version 1)
Quarter: 2014Q2

REPORT INFORMATION
  Report Type: Spontaneous
  Country: US (occurrence: US)
  Receive Date: 20140508
  Receipt Date: 20140508
  Transmission Date: 20141212
  Serious: Yes (Hospitalization)
  Sender: FDA-Public Use
  Company Number: US-BAYER-2014-066946

PATIENT
  Age: 31 Year
  Sex: Female

DRUGS (5)
  1. YASMIN [Suspect]
  2. ZITHROMAX [Concomitant]
     Dosage: 5 DAYS
  3. ALBUTEROL [Concomitant]
  4. ROBAXIN [Concomitant]
  5. TYLENOL [PARACETAMOL] [Concomitant]

REACTIONS (1)
  - Pulmonary embolism [Recovering/Resolving]
